FAERS Safety Report 25182796 (Version 1)
Quarter: 2025Q2

REPORT INFORMATION
  Report Type: Spontaneous
  Country: US (occurrence: US)
  Receive Date: 20250410
  Receipt Date: 20250410
  Transmission Date: 20250717
  Serious: No
  Sender: SANDOZ
  Company Number: US-SANDOZ-SDZ2025US021502

PATIENT
  Age: 69 Year
  Sex: Female
  Weight: 68 kg

DRUGS (4)
  1. ZOFRAN [Suspect]
     Active Substance: ONDANSETRON HYDROCHLORIDE
     Indication: Symptomatic treatment
     Route: 065
  2. ANASTROZOLE [Concomitant]
     Active Substance: ANASTROZOLE
     Indication: Breast cancer metastatic
     Dosage: 1 TABLET DAILY
     Route: 048
     Dates: start: 20250221
  3. CALCIUM [Concomitant]
     Active Substance: CALCIUM
     Indication: Symptomatic treatment
     Route: 065
  4. MAGNESIUM [Concomitant]
     Active Substance: MAGNESIUM
     Indication: Symptomatic treatment
     Route: 065

REACTIONS (2)
  - Therapeutic product effect decreased [Unknown]
  - Self-medication [Unknown]
